FAERS Safety Report 13486731 (Version 1)
Quarter: 2017Q2

REPORT INFORMATION
  Report Type: Spontaneous
  Country: US (occurrence: US)
  Receive Date: 20170426
  Receipt Date: 20170426
  Transmission Date: 20170830
  Serious: No
  Sender: FDA-Public Use
  Company Number: US-PFIZER INC-2017181370

PATIENT

DRUGS (2)
  1. TYLENOL [Suspect]
     Active Substance: ACETAMINOPHEN
     Indication: MUSCLE SPASMS
     Dosage: UNK
  2. ADVIL [Suspect]
     Active Substance: IBUPROFEN
     Indication: MUSCLE SPASMS
     Dosage: UNK

REACTIONS (1)
  - Drug ineffective [Unknown]
